FAERS Safety Report 21953309 (Version 1)
Quarter: 2023Q1

REPORT INFORMATION
  Report Type: Other
  Country: KZ (occurrence: KZ)
  Receive Date: 20230204
  Receipt Date: 20230204
  Transmission Date: 20230418
  Serious: Yes (Other)
  Sender: FDA-Public Use
  Company Number: KZ-MACLEODS PHARMA EU LTD-MAC2023039570

PATIENT

DRUGS (5)
  1. PYRAZINAMIDE [Suspect]
     Active Substance: PYRAZINAMIDE
     Indication: Pulmonary tuberculosis
     Dosage: 500 MILLIGRAM
     Route: 065
  2. PYRAZINAMIDE [Suspect]
     Active Substance: PYRAZINAMIDE
     Indication: Pulmonary tuberculosis
  3. Levozin [Concomitant]
     Indication: Product used for unknown indication
     Dosage: 500 MILLIGRAM ( NOBEL ALMATY PHARMACEUTICAL FACTORY)
     Route: 065
  4. CLOFAZIMINE [Concomitant]
     Active Substance: CLOFAZIMINE
     Indication: Product used for unknown indication
     Dosage: UNK
     Route: 065
  5. CYCLOSERINE [Concomitant]
     Active Substance: CYCLOSERINE
     Indication: Product used for unknown indication
     Dosage: UNK ( ABDI IBRAHIM GLOBAL PHARM)
     Route: 065

REACTIONS (1)
  - Hepatotoxicity [Not Recovered/Not Resolved]
